FAERS Safety Report 5401567-7 (Version None)
Quarter: 2007Q3

REPORT INFORMATION
  Report Type: 
  Country: None (occurrence: None)
  Receive Date: 20070731
  Receipt Date: 20070724
  Transmission Date: 20080115
  Serious: Yes (Other)
  Sender: FDA-Public Use
  Company Number: US-ROCHE-502957

PATIENT
  Age: 61 Year
  Sex: Female

DRUGS (4)
  1. BONIVA [Suspect]
     Indication: OSTEOPOROSIS
     Dosage: REPORTED DOSING FREQUENCY ^MONTHLY.^
     Route: 048
     Dates: start: 20070201, end: 20070618
  2. PROTONIX [Concomitant]
  3. LIPITOR [Concomitant]
  4. PREMARIN [Concomitant]

REACTIONS (7)
  - CHEST PAIN [None]
  - DIARRHOEA [None]
  - DIZZINESS [None]
  - FLATULENCE [None]
  - GASTROOESOPHAGEAL REFLUX DISEASE [None]
  - HYPERVENTILATION [None]
  - HYPOAESTHESIA [None]
